FAERS Safety Report 4649102-5 (Version None)
Quarter: 2005Q2

REPORT INFORMATION
  Report Type: 
  Country: None (occurrence: None)
  Receive Date: 20050429
  Receipt Date: 20020603
  Transmission Date: 20051028
  Serious: Yes (Disabling)
  Sender: FDA-Public Use
  Company Number: CH-GLAXOSMITHKLINE-B0269841A

PATIENT
  Age: 58 Year
  Sex: Female

DRUGS (4)
  1. DEROXAT [Suspect]
     Indication: BIPOLAR DISORDER
     Dosage: 20MG PER DAY
     Route: 048
     Dates: start: 19990101
  2. REDUCTIL [Suspect]
     Indication: OBESITY
     Dosage: 15MG PER DAY
     Route: 048
     Dates: start: 20010901, end: 20011026
  3. QUILONORM [Suspect]
     Indication: BIPOLAR DISORDER
     Dosage: 665MG PER DAY
     Route: 048
     Dates: start: 19990101
  4. ELTROXIN [Concomitant]
     Indication: HYPOTHYROIDISM
     Dosage: .05MG PER DAY
     Route: 048
     Dates: start: 19960101

REACTIONS (8)
  - AKATHISIA [None]
  - DISORIENTATION [None]
  - DRUG INTERACTION [None]
  - HYPERHIDROSIS [None]
  - HYPERREFLEXIA [None]
  - SEROTONIN SYNDROME [None]
  - TREMOR [None]
  - VERTIGO [None]
